FAERS Safety Report 4462464-7 (Version None)
Quarter: 2004Q3

REPORT INFORMATION
  Report Type: 
  Country: None (occurrence: None)
  Receive Date: 20040928
  Receipt Date: 20040910
  Transmission Date: 20050211
  Serious: Yes (Hospitalization, Other)
  Sender: FDA-Public Use
  Company Number: 2004065789

PATIENT
  Age: 66 Year
  Sex: Female

DRUGS (4)
  1. ACUILIX (QUINAPRIL, HYDROCHLOROTHIAZIDE) [Suspect]
     Indication: ESSENTIAL HYPERTENSION
     Dosage: 1 D, ORAL
     Route: 048
     Dates: start: 19990701
  2. FLUINDIONE (FLUINDIONE) [Suspect]
     Indication: PULMONARY EMBOLISM
     Dosage: 1 D, ORAL
     Route: 048
     Dates: start: 20040428, end: 20040501
  3. CLONAZEPAM [Suspect]
     Indication: ILL-DEFINED DISORDER
     Dosage: 1 D, ORAL
     Route: 048
  4. BISOPROLOL FUMARATE [Suspect]
     Indication: ESSENTIAL HYPERTENSION
     Dosage: 10 MG (1 D), ORAL
     Route: 048
     Dates: start: 19970701

REACTIONS (3)
  - DRUG INEFFECTIVE [None]
  - INTERNATIONAL NORMALISED RATIO DECREASED [None]
  - PULMONARY EMBOLISM [None]
